FAERS Safety Report 23312455 (Version 1)
Quarter: 2023Q4

REPORT INFORMATION
  Report Type: Spontaneous
  Country: CA (occurrence: CA)
  Receive Date: 20231219
  Receipt Date: 20231219
  Transmission Date: 20240110
  Serious: Yes (Other)
  Sender: FDA-Public Use
  Company Number: CA-JNJFOC-20231235699

PATIENT

DRUGS (10)
  1. REMICADE [Suspect]
     Active Substance: INFLIXIMAB
     Indication: Product used for unknown indication
     Route: 064
  2. ADALIMUMAB [Suspect]
     Active Substance: ADALIMUMAB\ISOPROPYL ALCOHOL
     Indication: Product used for unknown indication
     Route: 064
  3. ERELZI [Suspect]
     Active Substance: ETANERCEPT-SZZS
     Indication: Product used for unknown indication
     Route: 064
  4. AZATHIOPRINE [Concomitant]
     Active Substance: AZATHIOPRINE
  5. ENTYVIO [Concomitant]
     Active Substance: VEDOLIZUMAB
     Dosage: POWDER FOR SOLUTION
     Route: 042
  6. GOLIMUMAB [Concomitant]
     Active Substance: GOLIMUMAB
  7. ROTARIX [Concomitant]
     Active Substance: HUMAN ROTAVIRUS A TYPE G1P(8) STRAIN RIX4414 LIVE ANTIGEN
     Route: 030
  8. ROTAVIRUS VACCINE LIVE REASSORT ORAL 5V [Concomitant]
     Dosage: 5V
     Route: 048
  9. TACROLIMUS [Concomitant]
     Active Substance: TACROLIMUS
  10. USTEKINUMAB [Concomitant]
     Active Substance: USTEKINUMAB

REACTIONS (17)
  - Neutropenia [Recovered/Resolved]
  - Gastrooesophageal reflux disease [Recovered/Resolved]
  - Ill-defined disorder [Recovered/Resolved]
  - Immunoglobulins abnormal [Recovered/Resolved]
  - Irritability postvaccinal [Recovered/Resolved]
  - Low birth weight baby [Recovered/Resolved]
  - Milk allergy [Recovered/Resolved]
  - Lymphocyte count abnormal [Recovered/Resolved]
  - Mitogen stimulation test abnormal [Recovered/Resolved]
  - Vulvovaginal rash [Recovered/Resolved]
  - Premature baby [Recovered/Resolved]
  - White blood cell count abnormal [Recovered/Resolved]
  - Vomiting [Recovered/Resolved]
  - Anaemia [Recovered/Resolved]
  - Diarrhoea [Recovered/Resolved]
  - Foetal exposure during pregnancy [Recovered/Resolved]
  - Exposure via breast milk [Recovered/Resolved]
